FAERS Safety Report 8302087-2 (Version None)
Quarter: 2012Q2

REPORT INFORMATION
  Report Type: 
  Country: None (occurrence: None)
  Receive Date: 20120420
  Receipt Date: 20120416
  Transmission Date: 20120825
  Serious: Yes (Death, Hospitalization, Disabling, Other)
  Sender: FDA-Public Use
  Company Number: US-CELGENEUS-163-21880-12010784

PATIENT
  Sex: Female

DRUGS (16)
  1. ZOMETA [Concomitant]
     Route: 065
  2. REVLIMID [Suspect]
     Dosage: 25 MILLIGRAM
     Route: 048
     Dates: start: 20120111, end: 20120119
  3. VELCADE [Suspect]
     Dosage: 1.3 MILLIGRAM/SQ. METER
     Route: 065
     Dates: start: 20111209, end: 20120119
  4. PROBIOTIC [Concomitant]
     Route: 065
  5. ENOXAPARIN SODIUM [Concomitant]
     Route: 065
  6. ONDANSETRON [Concomitant]
     Route: 065
  7. ENOXAPARIN [Concomitant]
     Route: 065
  8. REVLIMID [Suspect]
     Indication: MULTIPLE MYELOMA
     Dosage: 25 MILLIGRAM
     Route: 048
     Dates: start: 20111215, end: 20111230
  9. LORAZEPAM [Concomitant]
     Route: 065
  10. OMEPRAZOLE [Concomitant]
     Route: 065
  11. DEXAMETHASONE [Suspect]
     Dosage: 40 MILLIGRAM
     Route: 048
     Dates: start: 20111209, end: 20120119
  12. FUROSEMIDE [Concomitant]
     Route: 065
  13. VALACYCLOVIR [Concomitant]
     Route: 065
  14. VITAMIN D [Concomitant]
     Route: 065
  15. CYANOCOBALAMIN [Concomitant]
     Route: 065
  16. ROSUVASTATIN [Concomitant]
     Route: 065

REACTIONS (3)
  - CLOSTRIDIAL INFECTION [None]
  - DIARRHOEA [None]
  - MULTIPLE MYELOMA [None]
